FAERS Safety Report 9551464 (Version 1)
Quarter: 2013Q3

REPORT INFORMATION
  Report Type: Spontaneous
  Country: US (occurrence: None)
  Receive Date: 20130724
  Receipt Date: 20130724
  Transmission Date: 20140515
  Serious: Yes (Other)
  Sender: FDA-Public Use
  Company Number: PHEH2012US011605

PATIENT
  Age: 36 Year
  Sex: Female
  Weight: 68.5 kg

DRUGS (2)
  1. GLEEVEC (IMATINIB) UNKNOWN [Suspect]
     Indication: CHRONIC MYELOID LEUKAEMIA
     Route: 048
     Dates: start: 20120518, end: 20120531
  2. COMPAZINE (PROCHLORPERAZINE EDISYLATE) [Concomitant]

REACTIONS (4)
  - Face oedema [None]
  - Hypersensitivity [None]
  - Alopecia [None]
  - Nausea [None]
